FAERS Safety Report 7842028 (Version 3)
Quarter: 2013Q2

REPORT INFORMATION
  Report Type: Spontaneous
  Country: US (occurrence: US)
  Receive Date: 20110304
  Receipt Date: 20130517
  Transmission Date: 20140414
  Serious: Yes (Hospitalization)
  Sender: FDA-Public Use
  Company Number: US-ASTRAZENECA-2011SE10875

PATIENT
  Age: 49 Year
  Sex: Male
  Weight: 136.1 kg

DRUGS (19)
  1. SEROQUEL [Suspect]
     Indication: PANIC ATTACK
     Route: 048
     Dates: start: 2004
  2. SEROQUEL [Suspect]
     Indication: MAJOR DEPRESSION
     Route: 048
     Dates: start: 2004
  3. SEROQUEL [Suspect]
     Indication: PANIC ATTACK
     Route: 048
     Dates: start: 2006
  4. SEROQUEL [Suspect]
     Indication: MAJOR DEPRESSION
     Route: 048
     Dates: start: 2006
  5. SEROQUEL [Suspect]
     Indication: PANIC ATTACK
     Route: 048
     Dates: start: 2006
  6. SEROQUEL [Suspect]
     Indication: MAJOR DEPRESSION
     Route: 048
     Dates: start: 2006
  7. SEROQUEL [Suspect]
     Indication: PANIC ATTACK
     Route: 048
     Dates: start: 2009
  8. SEROQUEL [Suspect]
     Indication: MAJOR DEPRESSION
     Route: 048
     Dates: start: 2009
  9. SEROQUEL [Suspect]
     Indication: PANIC ATTACK
     Route: 048
     Dates: start: 20100606
  10. SEROQUEL [Suspect]
     Indication: MAJOR DEPRESSION
     Route: 048
     Dates: start: 20100606
  11. SEROQUEL [Suspect]
     Indication: PANIC ATTACK
     Route: 048
     Dates: start: 20100913
  12. SEROQUEL [Suspect]
     Indication: MAJOR DEPRESSION
     Route: 048
     Dates: start: 20100913
  13. SEROQUEL [Suspect]
     Indication: PANIC ATTACK
     Route: 048
  14. SEROQUEL [Suspect]
     Indication: MAJOR DEPRESSION
     Route: 048
  15. PROTONIX [Concomitant]
  16. PAIN PILL [Concomitant]
     Indication: PAIN
  17. STOOL SOFTENER [Concomitant]
  18. LEXAPRO [Concomitant]
     Dosage: 20 DAILY
     Dates: end: 201012
  19. CELEXA [Concomitant]
     Dates: start: 201012

REACTIONS (10)
  - Road traffic accident [Unknown]
  - Femur fracture [Unknown]
  - Ligament sprain [Unknown]
  - Hip fracture [Unknown]
  - Weight decreased [Unknown]
  - Mobility decreased [Unknown]
  - Sciatic nerve injury [Unknown]
  - Gait disturbance [Unknown]
  - Sciatica [Unknown]
  - Off label use [Unknown]
